FAERS Safety Report 16956865 (Version 2)
Quarter: 2020Q1

REPORT INFORMATION
  Report Type: Spontaneous
  Country: JP (occurrence: JP)
  Receive Date: 20191024
  Receipt Date: 20200116
  Transmission Date: 20200409
  Serious: Yes (Hospitalization, Other)
  Sender: FDA-Public Use
  Company Number: JP-ASTRAZENECA-2019SF49218

PATIENT
  Age: 77 Year
  Sex: Male

DRUGS (2)
  1. GENINAX [Concomitant]
     Active Substance: GARENOXACIN MESYLATE
  2. IMFINZI [Suspect]
     Active Substance: DURVALUMAB
     Indication: NON-SMALL CELL LUNG CANCER
     Route: 042
     Dates: start: 20190718, end: 20190926

REACTIONS (4)
  - Metastases to adrenals [Unknown]
  - Malignant neoplasm progression [Unknown]
  - Pneumonitis [Recovered/Resolved]
  - Pleural effusion [Recovered/Resolved]

NARRATIVE: CASE EVENT DATE: 201909
